FAERS Safety Report 21315101 (Version 1)
Quarter: 2022Q3

REPORT INFORMATION
  Report Type: Spontaneous
  Country: GB (occurrence: GB)
  Receive Date: 20220909
  Receipt Date: 20220909
  Transmission Date: 20221027
  Serious: Yes (Other)
  Sender: FDA-Public Use
  Company Number: GB-MHRA-MED-202208302137447490-TPRNB

PATIENT
  Age: 31 Year
  Sex: Male
  Weight: 46 kg

DRUGS (7)
  1. SCOPOLAMINE [Suspect]
     Active Substance: SCOPOLAMINE
     Indication: Productive cough
     Dosage: 1.5 MILLIGRAM (MG), ONCE IN 72 HOURS
     Route: 065
     Dates: start: 20220824
  2. BUPRENORPHINE [Suspect]
     Active Substance: BUPRENORPHINE
     Indication: Analgesic therapy
     Dosage: 10 MG/HOUR SEVEN DAY, PHARMACEUTICAL FORM: TRANSDERMAL PATCH
     Route: 062
     Dates: start: 20220818
  3. BUPRENORPHINE [Suspect]
     Active Substance: BUPRENORPHINE
     Dosage: 20MG/HOUR SEVEN DAY
     Route: 062
     Dates: start: 20220819
  4. BUPRENORPHINE [Suspect]
     Active Substance: BUPRENORPHINE
     Indication: Analgesic therapy
     Dosage: 200 MILLIGRAM (MG)
     Route: 060
     Dates: start: 20220819
  5. NYSTATIN [Concomitant]
     Active Substance: NYSTATIN
     Indication: Tongue fungal infection
     Dosage: 100,000 UNITS/ML, PHARMACEUTICAL FORM: ORAL LIQUID
     Route: 048
  6. LIDOCAINE [Concomitant]
     Active Substance: LIDOCAINE
     Dosage: PRILOCAINE/LIDOCAINE 2.5%/2.5%, CREAM
     Route: 065
  7. PRILOCAINE [Concomitant]
     Active Substance: PRILOCAINE
     Dosage: PRILOCAINE/LIDOCAINE 2.5%/2.5%, CREAM
     Route: 065

REACTIONS (7)
  - Dry throat [Not Recovered/Not Resolved]
  - Cough [Not Recovered/Not Resolved]
  - Dysphagia [Not Recovered/Not Resolved]
  - Oropharyngeal pain [Not Recovered/Not Resolved]
  - Productive cough [Not Recovered/Not Resolved]
  - Dry mouth [Not Recovered/Not Resolved]
  - Sputum retention [Unknown]

NARRATIVE: CASE EVENT DATE: 20220825
